FAERS Safety Report 22035634 (Version 1)
Quarter: 2023Q1

REPORT INFORMATION
  Report Type: Report from Study
  Country: CA (occurrence: CA)
  Receive Date: 20230224
  Receipt Date: 20230224
  Transmission Date: 20230418
  Serious: Yes (Other)
  Sender: FDA-Public Use
  Company Number: CA-PFIZER INC-202300079515

PATIENT
  Age: 43 Year
  Sex: Male

DRUGS (2)
  1. METHOTREXATE SODIUM [Suspect]
     Active Substance: METHOTREXATE SODIUM
     Route: 065
  2. TALTZ [Concomitant]
     Active Substance: IXEKIZUMAB
     Route: 065

REACTIONS (3)
  - Cellulitis [Unknown]
  - Ill-defined disorder [Unknown]
  - Liver function test abnormal [Unknown]
